FAERS Safety Report 8471049-7 (Version None)
Quarter: 2012Q2

REPORT INFORMATION
  Report Type: 
  Country: None (occurrence: None)
  Receive Date: 20120627
  Receipt Date: 20120619
  Transmission Date: 20120825
  Serious: Yes (Hospitalization)
  Sender: FDA-Public Use
  Company Number: US-BAYER-2012-062429

PATIENT
  Age: 31 Year
  Sex: Female
  Weight: 113.83 kg

DRUGS (11)
  1. SYNTHROID [Concomitant]
     Indication: HYPOTHYROIDISM
     Dosage: 100 ?G, QD
     Route: 048
  2. AYGESTIN [Concomitant]
     Dosage: 5 MG, UNK
     Route: 048
     Dates: start: 20110411
  3. BEYAZ [Suspect]
     Dosage: 3 MG, UNK
     Route: 048
  4. BEYAZ [Suspect]
     Dosage: 0.02 MG, UNK
  5. BEYAZ [Suspect]
     Dosage: 0.451 MG, UNK
  6. COLACE [Concomitant]
     Dosage: 100 MG, QD
     Route: 048
  7. MULTI-VITAMINS [Concomitant]
     Dosage: UNK
     Dates: start: 20111121
  8. OVER-THE-COUNTER MEDICATIONS [Concomitant]
     Indication: PAIN IN EXTREMITY
     Dosage: UNK
     Dates: start: 20111121
  9. LEVOXYL [Concomitant]
  10. FERROUS SULFATE TAB [Concomitant]
     Indication: ANAEMIA
     Dosage: 324 MG, (65 MG IRON) EC ( ENTERIC COATED) TAB TID
  11. LEVOTHYROXINE [Concomitant]
     Indication: HYPOTHYROIDISM
     Dosage: 100 ?G, QD
     Dates: start: 20100504, end: 20111121

REACTIONS (2)
  - DEEP VEIN THROMBOSIS [None]
  - PULMONARY EMBOLISM [None]
